FAERS Safety Report 22523375 (Version 2)
Quarter: 2024Q2

REPORT INFORMATION
  Report Type: Other
  Country: JP (occurrence: JP)
  Receive Date: 20230606
  Receipt Date: 20240508
  Transmission Date: 20240716
  Serious: Yes (Other)
  Sender: FDA-Public Use
  Company Number: JP-CHUGAI-2023019477AA

PATIENT
  Age: 63 Year

DRUGS (4)
  1. ATEZOLIZUMAB [Suspect]
     Active Substance: ATEZOLIZUMAB
     Indication: Hepatocellular carcinoma
     Dosage: 1200 MILLIGRAM
     Route: 041
     Dates: start: 20210330
  2. AVASTIN [Suspect]
     Active Substance: BEVACIZUMAB
     Indication: Hepatocellular carcinoma
     Dosage: 920 MILLIGRAM
     Route: 041
     Dates: start: 20210330
  3. AVASTIN [Suspect]
     Active Substance: BEVACIZUMAB
     Dosage: 900 MILLIGRAM
     Route: 041
  4. AVASTIN [Suspect]
     Active Substance: BEVACIZUMAB
     Dosage: 800 MILLIGRAM
     Route: 041

REACTIONS (5)
  - Hypertension [Not Recovered/Not Resolved]
  - Ascites [Recovered/Resolved]
  - Liver carcinoma ruptured [Recovered/Resolved]
  - Proteinuria [Not Recovered/Not Resolved]
  - Peripheral sensory neuropathy [Recovered/Resolved]

NARRATIVE: CASE EVENT DATE: 20210512
